FAERS Safety Report 4581103-8 (Version None)
Quarter: 2005Q1

REPORT INFORMATION
  Report Type: 
  Country: None (occurrence: None)
  Receive Date: 20050214
  Receipt Date: 20040806
  Transmission Date: 20050727
  Serious: Yes (Other)
  Sender: FDA-Public Use
  Company Number: US-GLAXOSMITHKLINE-A0521294A

PATIENT
  Age: 30 Year
  Sex: Female
  Weight: 72.7 kg

DRUGS (3)
  1. LAMICTAL [Suspect]
     Indication: MOOD SWINGS
     Dosage: 25MG PER DAY
     Route: 048
     Dates: start: 20040715, end: 20040721
  2. GEODON [Concomitant]
     Indication: ILLUSION
     Dosage: 40MG PER DAY
     Route: 048
  3. LEXAPRO [Concomitant]
     Indication: DEPRESSION
     Dosage: 10MG PER DAY
     Route: 048

REACTIONS (2)
  - HYPERSENSITIVITY [None]
  - URTICARIA [None]
